FAERS Safety Report 15206614 (Version 1)
Quarter: 2018Q3

REPORT INFORMATION
  Report Type: Spontaneous
  Country: US (occurrence: US)
  Receive Date: 20180628
  Receipt Date: 20180628
  Transmission Date: 20181010
  Serious: Yes (Other)
  Sender: FDA-Public Use
  Company Number: None

PATIENT
  Age: 65 Year
  Sex: Male
  Weight: 74.84 kg

DRUGS (2)
  1. DIAZEPAM. [Suspect]
     Active Substance: DIAZEPAM
     Indication: FACIAL PAIN
     Dosage: ?          OTHER DOSE:? TO 1;?
     Route: 048
     Dates: start: 20170719
  2. DIAZEPAM. [Suspect]
     Active Substance: DIAZEPAM
     Indication: INSOMNIA

REACTIONS (4)
  - Drug intolerance [None]
  - Vomiting [None]
  - Product substitution issue [None]
  - Nausea [None]
